FAERS Safety Report 24853748 (Version 1)
Quarter: 2025Q1

REPORT INFORMATION
  Report Type: Spontaneous
  Country: MX (occurrence: MX)
  Receive Date: 20250117
  Receipt Date: 20250117
  Transmission Date: 20250409
  Serious: Yes (Death)
  Sender: ROCHE
  Company Number: MX-ROCHE-10000180333

PATIENT
  Age: 22 Year
  Sex: Male

DRUGS (1)
  1. HEMLIBRA [Suspect]
     Active Substance: EMICIZUMAB-KXWH
     Indication: Factor VIII deficiency
     Route: 065
     Dates: start: 201912, end: 202412

REACTIONS (2)
  - Gun shot wound [Fatal]
  - Physical assault [Fatal]

NARRATIVE: CASE EVENT DATE: 20250101
